FAERS Safety Report 6711997-9 (Version None)
Quarter: 2010Q2

REPORT INFORMATION
  Report Type: 
  Country: None (occurrence: None)
  Receive Date: 20100505
  Receipt Date: 20100426
  Transmission Date: 20101027
  Serious: Yes (Hospitalization)
  Sender: FDA-Public Use
  Company Number: GXKR2010AT04790

PATIENT
  Age: 76 Year
  Sex: Female
  Weight: 70 kg

DRUGS (17)
  1. ENALAPRIL (NGX) [Suspect]
     Dosage: 5 MG, QD
     Route: 048
  2. METAMIZOLE SODIUM [Interacting]
     Dosage: 5 DRP, TID
     Route: 048
  3. CONTRAST MEDIA [Suspect]
     Route: 065
  4. BERODUAL [Concomitant]
     Dosage: 1 DF, QD
  5. CAL-D-VITA [Concomitant]
     Dosage: 1 DF, QD
     Route: 065
  6. LEVOLAC [Concomitant]
     Dosage: 2 DF, QD
  7. LEXOTANIL [Concomitant]
     Dosage: 1 DF, QD
     Route: 065
  8. LOVENOX [Concomitant]
     Dosage: 1 DF, QD
     Route: 065
  9. MEXALEN [Concomitant]
     Dosage: 1 DF, TID
  10. MUCOBENE [Concomitant]
     Dosage: 1 DF, QD
     Route: 065
  11. PANTOPRAZOLE [Concomitant]
     Dosage: 1 DF, QD
     Route: 065
  12. THEOPHYLLINE [Concomitant]
     Dosage: 1 DF, QD
     Route: 065
  13. SUCRALAN [Concomitant]
     Dosage: 1 DF, TID
     Route: 065
  14. BUDESONIDE W/FORMOTEROL FUMARATE [Concomitant]
     Dosage: 2 DF, TID
  15. THYREX [Concomitant]
     Dosage: 0.5 DF, QD
     Route: 065
  16. CETRIMIDE [Concomitant]
     Dosage: 1 DF, QD
     Route: 065
  17. VALERIAN ROOT [Concomitant]
     Dosage: 2 DF, QD
     Route: 065

REACTIONS (3)
  - ANGIOEDEMA [None]
  - DRUG INTERACTION [None]
  - OEDEMA MUCOSAL [None]
